FAERS Safety Report 7003994-3 (Version None)
Quarter: 2010Q3

REPORT INFORMATION
  Report Type: 
  Country: None (occurrence: None)
  Receive Date: 20100920
  Receipt Date: 20100107
  Transmission Date: 20110219
  Serious: No
  Sender: FDA-Public Use
  Company Number: US-WYE-H12910210

PATIENT
  Age: 39 Year
  Sex: Female
  Weight: 59.02 kg

DRUGS (2)
  1. PRISTIQ [Suspect]
     Indication: DEPRESSION
     Dosage: 50 MG, FREQUENCY UNKNOWN
     Route: 048
     Dates: start: 20090801, end: 20090901
  2. PRISTIQ [Suspect]
     Dosage: 100 MG, FREQUENCY UNKNOWN
     Route: 048
     Dates: start: 20090901

REACTIONS (1)
  - NIGHT SWEATS [None]
